FAERS Safety Report 13915306 (Version 2)
Quarter: 2017Q4

REPORT INFORMATION
  Report Type: Report from Study
  Country: None (occurrence: US)
  Receive Date: 20170829
  Receipt Date: 20171016
  Transmission Date: 20180320
  Serious: Yes (Other)
  Sender: FDA-Public Use
  Company Number: US-ABBVIE-17K-163-2080825-00

PATIENT
  Sex: Male

DRUGS (2)
  1. HUMIRA [Suspect]
     Active Substance: ADALIMUMAB
     Indication: PSORIASIS
     Route: 058
  2. BABY ASPIRIN [Concomitant]
     Active Substance: ASPIRIN
     Indication: PRODUCT USED FOR UNKNOWN INDICATION

REACTIONS (8)
  - Retinal haemorrhage [Recovered/Resolved]
  - Skin haemorrhage [Not Recovered/Not Resolved]
  - Gastrointestinal disorder [Recovering/Resolving]
  - Visual impairment [Not Recovered/Not Resolved]
  - Road traffic accident [Recovered/Resolved]
  - Eye haemorrhage [Not Recovered/Not Resolved]
  - Cholecystectomy [Recovered/Resolved]
  - Skin discolouration [Not Recovered/Not Resolved]
